FAERS Safety Report 20543337 (Version 1)
Quarter: 2022Q1

REPORT INFORMATION
  Report Type: Spontaneous
  Country: JP (occurrence: JP)
  Receive Date: 20220302
  Receipt Date: 20220302
  Transmission Date: 20220423
  Serious: Yes (Hospitalization, Other)
  Sender: FDA-Public Use
  Company Number: JP-Eisai-202112255_FYC_P_1

PATIENT
  Sex: Female

DRUGS (1)
  1. PERAMPANEL [Suspect]
     Active Substance: PERAMPANEL
     Indication: Product used for unknown indication
     Dosage: TOTAL DOSE UNKNOWN
     Route: 048

REACTIONS (4)
  - Status epilepticus [Recovering/Resolving]
  - Altered state of consciousness [Recovering/Resolving]
  - Suicide attempt [Unknown]
  - Intentional overdose [Recovered/Resolved]
